FAERS Safety Report 19724794 (Version 2)
Quarter: 2021Q3

REPORT INFORMATION
  Report Type: Other
  Country: CA (occurrence: CA)
  Receive Date: 20210820
  Receipt Date: 20210908
  Transmission Date: 20211014
  Serious: Yes (Hospitalization)
  Sender: FDA-Public Use
  Company Number: CA-ROCHE-2377592

PATIENT
  Age: 87 Year
  Sex: Female
  Weight: 45 kg

DRUGS (10)
  1. COVID?19 VACCINE NOS. [Suspect]
     Active Substance: COVID-19 VACCINE NOS
     Indication: COVID-19 IMMUNISATION
     Route: 065
  2. PULMICORT TURBUHALER [Concomitant]
     Active Substance: BUDESONIDE
     Indication: PRODUCT USED FOR UNKNOWN INDICATION
  3. CALCIUM [Concomitant]
     Active Substance: CALCIUM
     Indication: PRODUCT USED FOR UNKNOWN INDICATION
  4. ACTEMRA [Suspect]
     Active Substance: TOCILIZUMAB
     Indication: RHEUMATOID ARTHRITIS
     Route: 058
     Dates: start: 20181212
  5. HYALURONIC ACID [Concomitant]
     Active Substance: HYALURONIC ACID
     Indication: PRODUCT USED FOR UNKNOWN INDICATION
  6. FLOVENT [Concomitant]
     Active Substance: FLUTICASONE PROPIONATE
     Indication: PRODUCT USED FOR UNKNOWN INDICATION
  7. VITAMIN D3 [Concomitant]
     Active Substance: CHOLECALCIFEROL
     Indication: PRODUCT USED FOR UNKNOWN INDICATION
  8. RAMIPRIL. [Concomitant]
     Active Substance: RAMIPRIL
     Indication: PRODUCT USED FOR UNKNOWN INDICATION
  9. SYNTHROID [Concomitant]
     Active Substance: LEVOTHYROXINE SODIUM
     Indication: PRODUCT USED FOR UNKNOWN INDICATION
  10. VITAMIN C [Concomitant]
     Active Substance: ASCORBIC ACID
     Indication: PRODUCT USED FOR UNKNOWN INDICATION

REACTIONS (22)
  - Movement disorder [Unknown]
  - Osteoarthritis [Unknown]
  - Sinusitis [Unknown]
  - C-reactive protein increased [Unknown]
  - Cerebrovascular accident [Unknown]
  - Upper respiratory tract infection [Unknown]
  - Eye infection [Unknown]
  - Asthenia [Unknown]
  - Hand deformity [Not Recovered/Not Resolved]
  - Arthralgia [Not Recovered/Not Resolved]
  - Laryngitis [Not Recovered/Not Resolved]
  - Weight increased [Unknown]
  - Periorbital infection [Unknown]
  - Finger deformity [Not Recovered/Not Resolved]
  - Lower respiratory tract congestion [Recovering/Resolving]
  - Transient ischaemic attack [Recovering/Resolving]
  - Chondromalacia [Not Recovered/Not Resolved]
  - Nasopharyngitis [Recovered/Resolved]
  - Drug ineffective [Unknown]
  - Urinary tract infection [Unknown]
  - Affective disorder [Unknown]
  - Fatigue [Unknown]

NARRATIVE: CASE EVENT DATE: 2019
